FAERS Safety Report 18510427 (Version 1)
Quarter: 2020Q4

REPORT INFORMATION
  Report Type: Spontaneous
  Country: US (occurrence: US)
  Receive Date: 20201116
  Receipt Date: 20201116
  Transmission Date: 20210114
  Serious: Yes (Hospitalization)
  Sender: FDA-Public Use
  Company Number: None

PATIENT
  Age: 65 Year
  Sex: Male
  Weight: 87.75 kg

DRUGS (1)
  1. REPATHA [Suspect]
     Active Substance: EVOLOCUMAB
     Indication: BLOOD CHOLESTEROL
     Route: 030
     Dates: start: 20200914

REACTIONS (7)
  - Loss of consciousness [None]
  - Osteomyelitis [None]
  - Arthralgia [None]
  - Pain in extremity [None]
  - Weight decreased [None]
  - Myalgia [None]
  - Mobility decreased [None]

NARRATIVE: CASE EVENT DATE: 20201018
